FAERS Safety Report 6612230-9 (Version None)
Quarter: 2010Q1

REPORT INFORMATION
  Report Type: 
  Country: None (occurrence: None)
  Receive Date: 20100303
  Receipt Date: 20100222
  Transmission Date: 20100710
  Serious: Yes (Hospitalization)
  Sender: FDA-Public Use
  Company Number: GB-WATSON-2010-02326

PATIENT
  Age: 56 Year
  Sex: Male

DRUGS (2)
  1. SIMVASTATIN [Suspect]
     Indication: DRUG USE FOR UNKNOWN INDICATION
     Dosage: 40 MG, UNK
     Route: 065
  2. SIMVASTATIN [Suspect]
     Dosage: 20 MG, UNK
     Route: 065

REACTIONS (2)
  - COMPARTMENT SYNDROME [None]
  - MYOSITIS [None]
